FAERS Safety Report 22006385 (Version 1)
Quarter: 2023Q1

REPORT INFORMATION
  Report Type: Report from Study
  Country: US (occurrence: US)
  Receive Date: 20230217
  Receipt Date: 20230217
  Transmission Date: 20230417
  Serious: Yes (Life-Threatening, Disabling, Other)
  Sender: FDA-Public Use
  Company Number: US-002147023-NVSC2023US035792

PATIENT
  Age: 79 Year
  Sex: Female
  Weight: 80.29 kg

DRUGS (2)
  1. ENTRESTO [Suspect]
     Active Substance: SACUBITRIL\VALSARTAN
     Indication: Cardiac disorder
     Dosage: 1 DOSAGE FORM, BID
     Route: 048
     Dates: start: 202112
  2. NITROGLYCERIN [Suspect]
     Active Substance: NITROGLYCERIN
     Indication: Insomnia
     Dosage: UNK (NIGHT)
     Route: 065
     Dates: start: 20230214

REACTIONS (7)
  - Heart rate increased [Not Recovered/Not Resolved]
  - Product use issue [Not Recovered/Not Resolved]
  - Insomnia [Unknown]
  - Heart rate irregular [Unknown]
  - Sneezing [Unknown]
  - Cough [Unknown]
  - Expired product administered [Unknown]

NARRATIVE: CASE EVENT DATE: 20230201
